FAERS Safety Report 9222557 (Version 2)
Quarter: 2013Q2

REPORT INFORMATION
  Report Type: Spontaneous
  Country: JP (occurrence: JP)
  Receive Date: 20130410
  Receipt Date: 20130426
  Transmission Date: 20140414
  Serious: Yes (Other)
  Sender: FDA-Public Use
  Company Number: JP-JNJFOC-20130403502

PATIENT
  Age: 73 Year
  Sex: Female

DRUGS (3)
  1. SIMPONI [Suspect]
     Indication: RHEUMATOID ARTHRITIS
     Route: 058
     Dates: start: 20121228, end: 20130125
  2. METHOTREXATE [Concomitant]
     Indication: RHEUMATOID ARTHRITIS
     Dosage: FOR 15 YEARS
     Route: 048
     Dates: start: 20000208
  3. ENDOXAN [Concomitant]
     Indication: PULMONARY FIBROSIS
     Dosage: CONTINUOSLY FOR 6 YEARS
     Route: 065
     Dates: start: 20070101

REACTIONS (1)
  - Pneumocystis jirovecii pneumonia [Recovered/Resolved]
